FAERS Safety Report 10537710 (Version 1)
Quarter: 2014Q4

REPORT INFORMATION
  Report Type: Spontaneous
  Country: US (occurrence: None)
  Receive Date: 20141021
  Receipt Date: 20141021
  Transmission Date: 20150529
  Serious: Yes (Hospitalization)
  Sender: FDA-Public Use
  Company Number: 2014SCAL000200

PATIENT
  Age: 61 Year
  Sex: Male

DRUGS (10)
  1. PIPERACILLIN + TAZOBACTAM (PIPERACILLIN SODIUM, TAZOBACTAM SODIUM) [Concomitant]
  2. ASPIRIN (ACETYLSALICYLIC ACID) [Concomitant]
     Active Substance: ASPIRIN
  3. INSULIN REGULAR /01223201/ (INSULIN BOVINE) [Concomitant]
  4. NPH INSULIN (ISOPHANE INSULIN) [Concomitant]
  5. AMITRIPTYLIN (AMITRIPTYLINE HYDROCHLORIDE) [Concomitant]
  6. ENOXAPARIN (ENOXAPARIN) [Concomitant]
     Active Substance: ENOXAPARIN
  7. LOSARTAN (LOSARTAN) [Suspect]
     Active Substance: LOSARTAN
     Indication: HYPERTENSION
     Route: 048
  8. TERAZOSIN [Concomitant]
     Active Substance: TERAZOSIN\TERAZOSIN HYDROCHLORIDE
  9. LITHIUM CARBONATE (LITHIUM CARBONATE) UNKNOWN [Suspect]
     Active Substance: LITHIUM CARBONATE
     Indication: BIPOLAR DISORDER
     Dosage: 900 MG, EVERY MORNING, ORAL
     Route: 048
  10. MULTIVITAMIN /00097801/ (ASCORBIC ACID, CALCIUM PANTOTHENATE, ERGOCALCIFEROL, NICOTINAMIDE, PYRIDOXINE HYDROCHLORIDE, RETINOL, RIBOFLAVIN, THIAMINE HYDROCHLORIDE) ? [Concomitant]

REACTIONS (6)
  - Irritability [None]
  - Disorientation [None]
  - Tremor [None]
  - Toxicity to various agents [None]
  - Drug interaction [None]
  - Confusional state [None]
